FAERS Safety Report 9691707 (Version 2)
Quarter: 2014Q1

REPORT INFORMATION
  Report Type: Spontaneous
  Country: US (occurrence: US)
  Receive Date: 20131115
  Receipt Date: 20140203
  Transmission Date: 20141002
  Serious: No
  Sender: FDA-Public Use
  Company Number: US-009507513-1310USA010515

PATIENT
  Age: 23 Year
  Sex: Female
  Weight: 85.71 kg

DRUGS (4)
  1. NEXPLANON [Suspect]
     Dosage: 1 ROD
     Route: 059
     Dates: start: 20131010, end: 20131010
  2. NEXPLANON [Suspect]
     Dosage: 1 ROD
     Route: 059
     Dates: start: 20131010, end: 20131010
  3. NEXPLANON [Suspect]
     Dosage: 1 ROD
     Route: 059
     Dates: start: 20131010, end: 20131010
  4. NEXPLANON [Suspect]
     Dosage: 1 ROD
     Route: 059
     Dates: start: 20131010

REACTIONS (3)
  - Device difficult to use [Recovered/Resolved]
  - Product quality issue [Unknown]
  - No adverse event [Unknown]
